FAERS Safety Report 5367165-9 (Version None)
Quarter: 2007Q2

REPORT INFORMATION
  Report Type: 
  Country: None (occurrence: None)
  Receive Date: 20070622
  Receipt Date: 20070412
  Transmission Date: 20071010
  Serious: No
  Sender: FDA-Public Use
  Company Number: US-BRISTOL-MYERS SQUIBB COMPANY-13745799

PATIENT
  Sex: Male

DRUGS (6)
  1. SINEMET CR [Suspect]
  2. KLONOPIN [Concomitant]
  3. VASOTEC [Concomitant]
  4. TENORMIN [Concomitant]
  5. REMERON [Concomitant]
  6. PROTONIX [Concomitant]

REACTIONS (1)
  - CHEST PAIN [None]
